FAERS Safety Report 5090530-4 (Version None)
Quarter: 2006Q3

REPORT INFORMATION
  Report Type: 
  Country: None (occurrence: None)
  Receive Date: 20060828
  Receipt Date: 20060526
  Transmission Date: 20061208
  Serious: No
  Sender: FDA-Public Use
  Company Number: US-GLAXOSMITHKLINE-A0607096A

PATIENT
  Age: 27 Year
  Sex: Female
  Weight: 78.2 kg

DRUGS (3)
  1. WELLBUTRIN XL [Suspect]
     Dosage: 300MG PER DAY
     Route: 048
  2. LEVOTHYROXINE SODIUM [Concomitant]
     Dosage: .025MG PER DAY
  3. CLARITIN [Concomitant]

REACTIONS (5)
  - CHEST PAIN [None]
  - FEELING ABNORMAL [None]
  - FEELING JITTERY [None]
  - HEADACHE [None]
  - PALPITATIONS [None]
